FAERS Safety Report 11180453 (Version 1)
Quarter: 2015Q2

REPORT INFORMATION
  Report Type: Spontaneous
  Country: JP (occurrence: None)
  Receive Date: 20150609
  Receipt Date: 20150609
  Transmission Date: 20150821
  Serious: Yes (Other)
  Sender: FDA-Public Use
  Company Number: IPC201505-000358

PATIENT
  Age: 83 Year
  Sex: Male

DRUGS (5)
  1. PROPRANOLOL HYDROCHLORIDE (PROPRANOLOL HYDROCHLORIDE) (PROPRANOLOL HYDROCHLORIDE) [Suspect]
     Active Substance: PROPRANOLOL HYDROCHLORIDE
  2. CLOPIDOGREL [Suspect]
     Active Substance: CLOPIDOGREL BISULFATE
  3. ROSUVASTATIN (ROSUVASTATIN) (ROSUVASTATIN) [Suspect]
     Active Substance: ROSUVASTATIN
  4. VALSARTAN (VALSARTAN) (VALSARTAN) [Suspect]
     Active Substance: VALSARTAN
  5. NICORANDIL (NICORANDIL) [Suspect]
     Active Substance: NICORANDIL

REACTIONS (2)
  - Coronary artery restenosis [None]
  - Drug reaction with eosinophilia and systemic symptoms [None]
